FAERS Safety Report 9879579 (Version 1)
Quarter: 2014Q1

REPORT INFORMATION
  Report Type: Spontaneous
  Country: US (occurrence: US)
  Receive Date: 20140206
  Receipt Date: 20140206
  Transmission Date: 20141002
  Serious: Yes (Other)
  Sender: FDA-Public Use
  Company Number: US-UCBSA-111075

PATIENT
  Age: 4 Year
  Sex: Female

DRUGS (12)
  1. VIMPAT [Suspect]
  2. KEPPRA [Suspect]
  3. PHENOBARBITAL [Suspect]
  4. LAMICTAL [Suspect]
  5. TOPAMAX [Suspect]
  6. DEPAKOTE [Suspect]
  7. TRILEPTAL [Suspect]
  8. CARBATROL [Suspect]
  9. VALIUM [Suspect]
  10. ONFI [Suspect]
  11. LEUKOVORIN [Suspect]
  12. B6 [Suspect]
     Dosage: HIGH DOSE

REACTIONS (7)
  - Stevens-Johnson syndrome [Unknown]
  - Hepatic failure [Unknown]
  - Convulsion [Unknown]
  - Adverse drug reaction [Unknown]
  - Skin discolouration [Unknown]
  - Anaemia [Unknown]
  - Drug ineffective [Unknown]
